FAERS Safety Report 19169298 (Version 2)
Quarter: 2021Q2

REPORT INFORMATION
  Report Type: Report from Study
  Country: FR (occurrence: FR)
  Receive Date: 20210422
  Receipt Date: 20210430
  Transmission Date: 20210717
  Serious: Yes (Other)
  Sender: FDA-Public Use
  Company Number: FR-EMD SERONO-9232297

PATIENT
  Age: 60 Year
  Sex: Female
  Weight: 65 kg

DRUGS (6)
  1. AVELUMAB [Suspect]
     Active Substance: AVELUMAB
     Route: 042
     Dates: start: 20210303
  2. PEXA?VEC [Suspect]
     Active Substance: PEXASTIMOGENE DEVACIREPVEC
     Indication: UTERINE LEIOMYOSARCOMA
     Dosage: DOSE 1.10?9 IU (INTERNATIONAL UNIT)
     Route: 036
     Dates: start: 20210203
  3. ENDOXAN                            /00021101/ [Suspect]
     Active Substance: CYCLOPHOSPHAMIDE
     Route: 048
     Dates: start: 20210302
  4. ENDOXAN                            /00021101/ [Suspect]
     Active Substance: CYCLOPHOSPHAMIDE
     Indication: UTERINE LEIOMYOSARCOMA
     Route: 048
     Dates: start: 20210127
  5. AVELUMAB [Suspect]
     Active Substance: AVELUMAB
     Indication: UTERINE LEIOMYOSARCOMA
     Route: 042
     Dates: start: 20210217
  6. PEXA?VEC [Suspect]
     Active Substance: PEXASTIMOGENE DEVACIREPVEC
     Dosage: DOSE 1.10?9 IU (INTERNATIONAL UNIT)
     Route: 036
     Dates: start: 20210303

REACTIONS (1)
  - Hypotension [Recovered/Resolved]

NARRATIVE: CASE EVENT DATE: 20210303
